FAERS Safety Report 25596560 (Version 6)
Quarter: 2025Q4

REPORT INFORMATION
  Report Type: Spontaneous
  Country: CA (occurrence: CA)
  Receive Date: 20250723
  Receipt Date: 20251114
  Transmission Date: 20260118
  Serious: Yes (Other)
  Sender: PFIZER
  Company Number: CA-PFIZER INC-202500090415

PATIENT
  Age: 39 Year
  Sex: Female
  Weight: 89 kg

DRUGS (7)
  1. IXIFI [Suspect]
     Active Substance: INFLIXIMAB-QBTX
     Indication: Crohn^s disease
     Dosage: 500 MG, EVERY 8 WEEKS (0,2,6 WEEKS INDUCTION)
     Route: 042
     Dates: start: 20250412
  2. IXIFI [Suspect]
     Active Substance: INFLIXIMAB-QBTX
     Dosage: 500 MG, AFTER 1 WEEK AND 6 DAYS
     Route: 042
     Dates: start: 20250425
  3. IXIFI [Suspect]
     Active Substance: INFLIXIMAB-QBTX
     Dosage: 500 MG, EVERY 8 WEEKS (0,2,6 WEEKS INDUCTION)
     Route: 042
     Dates: start: 20250524
  4. IXIFI [Suspect]
     Active Substance: INFLIXIMAB-QBTX
     Dosage: 500 MG, EVERY 8 WEEKS (0,2,6 WEEKS INDUCTION)
     Route: 042
     Dates: start: 20250719
  5. IXIFI [Suspect]
     Active Substance: INFLIXIMAB-QBTX
     Dosage: 500 MG AFTER 3 WEEK 5 DAY (RESCUE DOSE)(5MG/KG 1 RESCUE DOSE) 500 MG Q.8 WEEK (0,2,6 WEEK INDUCTION)
     Route: 042
     Dates: start: 20250814, end: 20250814
  6. IXIFI [Suspect]
     Active Substance: INFLIXIMAB-QBTX
     Dosage: 1000 MG,4 WEEKS 4 DAYS (EVERY 8 WEEK)
     Route: 042
     Dates: start: 20250915
  7. IXIFI [Suspect]
     Active Substance: INFLIXIMAB-QBTX
     Dosage: 1000 MG, EVERY 8 WEEK
     Route: 042
     Dates: start: 20251108

REACTIONS (7)
  - Uveitis [Recovered/Resolved]
  - Condition aggravated [Not Recovered/Not Resolved]
  - Arthralgia [Recovered/Resolved]
  - Therapeutic product effect incomplete [Unknown]
  - Fatigue [Recovered/Resolved]
  - Off label use [Unknown]
  - Off label use [Unknown]

NARRATIVE: CASE EVENT DATE: 20250101
